FAERS Safety Report 8443630-2 (Version None)
Quarter: 2012Q2

REPORT INFORMATION
  Report Type: 
  Country: None (occurrence: None)
  Receive Date: 20120618
  Receipt Date: 20120608
  Transmission Date: 20120825
  Serious: Yes (Hospitalization)
  Sender: FDA-Public Use
  Company Number: CA-JNJFOC-20120521493

PATIENT
  Sex: Female

DRUGS (2)
  1. REMICADE [Suspect]
     Indication: UVEITIS
     Dosage: 0, 2, AND 6 WEEK LOADING DOSE
     Route: 042
     Dates: start: 20120424, end: 20120518
  2. REMICADE [Suspect]
     Indication: ANKYLOSING SPONDYLITIS
     Dosage: 0, 2, AND 6 WEEK LOADING DOSE
     Route: 042
     Dates: start: 20120424, end: 20120518

REACTIONS (2)
  - NAUSEA [None]
  - VOMITING [None]
